FAERS Safety Report 12399319 (Version 1)
Quarter: 2016Q2

REPORT INFORMATION
  Report Type: Spontaneous
  Country: PL (occurrence: PL)
  Receive Date: 20160524
  Receipt Date: 20160524
  Transmission Date: 20160815
  Serious: Yes (Life-Threatening, Hospitalization, Other)
  Sender: FDA-Public Use
  Company Number: PL-ACTAVIS-2016-10647

PATIENT
  Age: 30 Year
  Sex: Male

DRUGS (5)
  1. CLENBUTEROL [Suspect]
     Active Substance: CLENBUTEROL
     Indication: SUICIDE ATTEMPT
  2. OLANZAPINE (UNKNOWN) [Suspect]
     Active Substance: OLANZAPINE
     Indication: SUICIDE ATTEMPT
     Dosage: UNK
     Route: 048
  3. CLENBUTEROL [Suspect]
     Active Substance: CLENBUTEROL
     Indication: DRUG ABUSE
     Dosage: 100 DF, SINGLE
     Route: 048
  4. ALPRAZOLAM (UNKNOWN) [Suspect]
     Active Substance: ALPRAZOLAM
     Indication: SUICIDE ATTEMPT
     Dosage: UNK
     Route: 048
  5. ALCOHOL. [Suspect]
     Active Substance: ALCOHOL
     Indication: PRODUCT USED FOR UNKNOWN INDICATION
     Dosage: UNK
     Route: 048

REACTIONS (11)
  - Metabolic acidosis [Recovered/Resolved]
  - Anxiety [Unknown]
  - Drug abuse [Unknown]
  - Hypokalaemia [Recovered/Resolved]
  - Somnolence [Recovered/Resolved]
  - Sinus tachycardia [Recovered/Resolved]
  - Dyspnoea [Recovered/Resolved]
  - Suicide attempt [Recovered/Resolved]
  - Intentional overdose [Recovered/Resolved]
  - Hypothermia [Recovered/Resolved]
  - Tremor [Recovered/Resolved]
